FAERS Safety Report 18067924 (Version 2)
Quarter: 2020Q3

REPORT INFORMATION
  Report Type: Spontaneous
  Country: US (occurrence: JP)
  Receive Date: 20200724
  Receipt Date: 20200805
  Transmission Date: 20201103
  Serious: Yes (Death, Other)
  Sender: FDA-Public Use
  Company Number: JP-BIOMARINAP-JP-2020-131286

PATIENT
  Age: 14 Year
  Sex: Male
  Weight: 21 kg

DRUGS (5)
  1. ALDURAZYME [Suspect]
     Active Substance: LARONIDASE
     Indication: MUCOPOLYSACCHARIDOSIS I
     Dosage: 11.6 MILLIGRAM, QW
     Route: 041
     Dates: start: 20070410, end: 20200708
  2. FUROSEMIDE. [Concomitant]
     Active Substance: FUROSEMIDE
     Indication: MITRAL VALVE INCOMPETENCE
     Dosage: UNK
     Dates: start: 20061201, end: 20200715
  3. DAIKENCHUTO [Concomitant]
     Active Substance: HERBALS
     Indication: CONSTIPATION
  4. ONON [Concomitant]
     Active Substance: PRANLUKAST
     Indication: RESPIRATORY DISORDER
  5. ALDACTONE [Concomitant]
     Active Substance: SPIRONOLACTONE
     Indication: MITRAL VALVE INCOMPETENCE
     Dosage: UNK
     Dates: start: 20061201, end: 20200715

REACTIONS (3)
  - Asphyxia [Fatal]
  - Disease progression [Fatal]
  - Cyanosis [Fatal]

NARRATIVE: CASE EVENT DATE: 20200715
